FAERS Safety Report 24695701 (Version 1)
Quarter: 2024Q4

REPORT INFORMATION
  Report Type: Report from Study
  Country: US (occurrence: US)
  Receive Date: 20241204
  Receipt Date: 20241204
  Transmission Date: 20250114
  Serious: Yes (Hospitalization)
  Sender: ALEXION PHARMACEUTICALS
  Company Number: US-ASTRAZENECA-202411USA025380US

PATIENT

DRUGS (1)
  1. STRENSIQ [Suspect]
     Active Substance: ASFOTASE ALFA
     Dosage: UNK
     Route: 065

REACTIONS (7)
  - Paranoia [Unknown]
  - Dental discomfort [Unknown]
  - Injection site bruising [Unknown]
  - Skin discolouration [Unknown]
  - Pain [Unknown]
  - Muscular weakness [Unknown]
  - Insomnia [Unknown]
